FAERS Safety Report 25143744 (Version 2)
Quarter: 2025Q2

REPORT INFORMATION
  Report Type: Spontaneous
  Country: ZA (occurrence: ZA)
  Receive Date: 20250401
  Receipt Date: 20250411
  Transmission Date: 20250717
  Serious: Yes (Other)
  Sender: NOVARTIS
  Company Number: ZA-002147023-NVSC2025ZA050925

PATIENT
  Sex: Female

DRUGS (1)
  1. COSENTYX [Suspect]
     Active Substance: SECUKINUMAB
     Indication: Psoriatic arthropathy
     Dosage: 150 MG, Q4W
     Route: 058
     Dates: start: 20250206, end: 20250325

REACTIONS (6)
  - Thrombosis [Unknown]
  - Limb discomfort [Unknown]
  - Pruritus [Unknown]
  - Blister [Unknown]
  - Scab [Unknown]
  - Rash [Unknown]
